FAERS Safety Report 5506672-2 (Version None)
Quarter: 2007Q4

REPORT INFORMATION
  Report Type: 
  Country: None (occurrence: None)
  Receive Date: 20071101
  Receipt Date: 20071003
  Transmission Date: 20080405
  Serious: Yes (Hospitalization)
  Sender: FDA-Public Use
  Company Number: SPI200700732

PATIENT
  Age: 90 Year
  Sex: Female

DRUGS (1)
  1. AMITIZA [Suspect]
     Dosage: 24 MCG, ORAL
     Route: 048

REACTIONS (4)
  - GASTROINTESTINAL HAEMORRHAGE [None]
  - INTERNATIONAL NORMALISED RATIO INCREASED [None]
  - PROTHROMBIN TIME PROLONGED [None]
  - UTERINE CANCER [None]
